FAERS Safety Report 9216478 (Version 1)
Quarter: 2013Q2

REPORT INFORMATION
  Report Type: Spontaneous
  Country: US (occurrence: US)
  Receive Date: 20130408
  Receipt Date: 20130408
  Transmission Date: 20140414
  Serious: Yes (Other)
  Sender: FDA-Public Use
  Company Number: US-ELI_LILLY_AND_COMPANY-US201303008970

PATIENT
  Sex: Female

DRUGS (2)
  1. CYMBALTA [Suspect]
     Indication: DEPRESSION
     Dosage: UNK
     Dates: start: 201212, end: 20130307
  2. HUMIRA [Concomitant]
     Dosage: 80 MG, QD

REACTIONS (2)
  - Lupus-like syndrome [Unknown]
  - Rash erythematous [Unknown]
